FAERS Safety Report 13240631 (Version 2)
Quarter: 2017Q2

REPORT INFORMATION
  Report Type: Spontaneous
  Country: US (occurrence: US)
  Receive Date: 20170216
  Receipt Date: 20170526
  Transmission Date: 20170830
  Serious: No
  Sender: FDA-Public Use
  Company Number: US-BAYER-2017-028333

PATIENT
  Sex: Female

DRUGS (1)
  1. CLIMARA [Suspect]
     Active Substance: ESTRADIOL
     Dosage: UNK
     Route: 062

REACTIONS (1)
  - Palpitations [Recovered/Resolved]
